FAERS Safety Report 16198605 (Version 1)
Quarter: 2019Q2

REPORT INFORMATION
  Report Type: Spontaneous
  Country: IN (occurrence: IN)
  Receive Date: 20190415
  Receipt Date: 20190415
  Transmission Date: 20190711
  Serious: Yes (Other)
  Sender: FDA-Public Use
  Company Number: IN-JUBILANT CADISTA PHARMACEUTICALS-2019JUB00137

PATIENT
  Age: 6 Year
  Sex: Male

DRUGS (9)
  1. CLONIDINE. [Concomitant]
     Active Substance: CLONIDINE
     Indication: PSYCHOMOTOR HYPERACTIVITY
     Dosage: 0.2 MG
     Route: 065
  2. OXCARBAZEPINE. [Concomitant]
     Active Substance: OXCARBAZEPINE
     Dosage: 900 MG
     Route: 065
  3. OLANZAPINE. [Suspect]
     Active Substance: OLANZAPINE
     Dosage: 2.5 MG
     Route: 065
  4. OLANZAPINE. [Suspect]
     Active Substance: OLANZAPINE
     Dosage: 1.25 MG
     Route: 065
  5. ATOMOXETINE. [Concomitant]
     Active Substance: ATOMOXETINE HYDROCHLORIDE
     Indication: PSYCHOMOTOR HYPERACTIVITY
     Dosage: 28 MG (OVER 6 WEEKS)
     Route: 065
  6. OLANZAPINE. [Suspect]
     Active Substance: OLANZAPINE
     Dosage: ^RESTARTED^
  7. OLANZAPINE. [Suspect]
     Active Substance: OLANZAPINE
     Dosage: 5 MG
     Route: 065
  8. SODIUM VALPROATE [Concomitant]
     Active Substance: VALPROATE SODIUM
     Dosage: 900 MG
  9. CLOBAZAM. [Concomitant]
     Active Substance: CLOBAZAM
     Dosage: 10 MG
     Route: 065

REACTIONS (1)
  - Substance-induced psychotic disorder [Recovered/Resolved]
